FAERS Safety Report 19184797 (Version 1)
Quarter: 2021Q2

REPORT INFORMATION
  Report Type: Spontaneous
  Country: FR (occurrence: FR)
  Receive Date: 20210427
  Receipt Date: 20210427
  Transmission Date: 20210717
  Serious: Yes (Hospitalization, Other)
  Sender: FDA-Public Use
  Company Number: FR-SUN PHARMACEUTICAL INDUSTRIES LTD-2018R1-172839

PATIENT
  Age: 94 Year
  Sex: Male

DRUGS (4)
  1. TAZOBACTAM [Suspect]
     Active Substance: TAZOBACTAM
     Indication: SEPSIS
     Dosage: 12 G, DAILY
     Route: 041
     Dates: start: 20180307, end: 20180311
  2. PARACETAMOL [Suspect]
     Active Substance: ACETAMINOPHEN
     Indication: PYREXIA
     Dosage: 3 G, DAILY
     Route: 040
     Dates: start: 20180307, end: 20180309
  3. PANTOPRAZOLE [Suspect]
     Active Substance: PANTOPRAZOLE
     Indication: ULCER
     Dosage: 40 MG, DAILY
     Route: 040
     Dates: start: 201802
  4. PIPERACILLINE BASE [Suspect]
     Active Substance: PIPERACILLIN SODIUM
     Indication: SEPSIS
     Dosage: 12 G, DAILY
     Route: 041
     Dates: start: 20180307, end: 20180311

REACTIONS (1)
  - Cholestasis [Recovered/Resolved]

NARRATIVE: CASE EVENT DATE: 20180310
